FAERS Safety Report 12238209 (Version 1)
Quarter: 2016Q2

REPORT INFORMATION
  Report Type: Spontaneous
  Country: GB (occurrence: GB)
  Receive Date: 20160405
  Receipt Date: 20160405
  Transmission Date: 20160815
  Serious: Yes (Other)
  Sender: FDA-Public Use
  Company Number: GB-ELI_LILLY_AND_COMPANY-GB201604000197

PATIENT

DRUGS (2)
  1. GEMCITABINE HYDROCHLORIDE. [Suspect]
     Active Substance: GEMCITABINE HYDROCHLORIDE
     Indication: TRANSITIONAL CELL CARCINOMA
     Dosage: 750 MG/M2, OTHER
     Route: 042
  2. VINFLUNINE [Suspect]
     Active Substance: VINFLUNINE
     Indication: TRANSITIONAL CELL CARCINOMA
     Dosage: UNK UNK, OTHER
     Route: 042

REACTIONS (1)
  - Febrile neutropenia [Unknown]
